FAERS Safety Report 9807366 (Version 2)
Quarter: 2015Q4

REPORT INFORMATION
  Report Type: Report from Study
  Country: US (occurrence: US)
  Receive Date: 20140110
  Receipt Date: 20151104
  Transmission Date: 20160305
  Serious: Yes (Other)
  Sender: FDA-Public Use
  Company Number: US-ROCHE-1329726

PATIENT
  Sex: Female
  Weight: 55.39 kg

DRUGS (17)
  1. AVASTIN [Suspect]
     Active Substance: BEVACIZUMAB
     Indication: AGE-RELATED MACULAR DEGENERATION
     Dosage: OD?THERAPY RECEIVED DATES: 14/AUG/2009, 18/NOV/2009
     Route: 065
     Dates: start: 20090713, end: 20091118
  2. LUTEIN [Concomitant]
     Active Substance: LUTEIN
  3. PHENYLEPHRINE [Concomitant]
     Active Substance: PHENYLEPHRINE\PHENYLEPHRINE HYDROCHLORIDE
     Indication: MYDRIASIS
     Dosage: OU
     Route: 065
  4. PROPARACAINE [Concomitant]
     Active Substance: PROPARACAINE
     Indication: MYDRIASIS
     Dosage: OU
     Route: 065
  5. MOTRIN [Concomitant]
     Active Substance: IBUPROFEN
  6. OCUFLOX (UNITED STATES) [Concomitant]
     Route: 065
     Dates: start: 20111019, end: 20111104
  7. LUCENTIS [Suspect]
     Active Substance: RANIBIZUMAB
     Indication: NEOVASCULAR AGE-RELATED MACULAR DEGENERATION
  8. CYCLOGYL [Concomitant]
     Active Substance: CYCLOPENTOLATE HYDROCHLORIDE
     Route: 065
     Dates: start: 20091206, end: 20091221
  9. GABAPENTIN. [Concomitant]
     Active Substance: GABAPENTIN
  10. TROPICAMIDE. [Concomitant]
     Active Substance: TROPICAMIDE
     Indication: MYDRIASIS
     Dosage: OU
     Route: 065
  11. LUCENTIS [Suspect]
     Active Substance: RANIBIZUMAB
     Indication: AGE-RELATED MACULAR DEGENERATION
     Dosage: THERAPY RECEIVED DATES: OD: 21/DEC/2009, 19/MAR/2010, 21/APR/2010, 23/JUN/2010, 23/JUL/2010, 25/AUG/
     Route: 050
     Dates: start: 20091210
  12. CELEXA (UNITED STATES) [Concomitant]
  13. TIMOLOL. [Concomitant]
     Active Substance: TIMOLOL
     Indication: GLAUCOMA
     Dosage: IN THE MORNING, OD
     Route: 047
  14. BONIVA [Concomitant]
     Active Substance: IBANDRONATE SODIUM
     Route: 065
  15. CELEBREX [Concomitant]
     Active Substance: CELECOXIB
  16. OMEGA 3 [Concomitant]
     Active Substance: OMEGA-3 FATTY ACIDS
  17. ZYMAR [Concomitant]
     Active Substance: GATIFLOXACIN
     Dosage: 1 DROPS QID, FOR 4 DAYS
     Route: 065
     Dates: start: 20090402, end: 20101006

REACTIONS (4)
  - Macular oedema [Unknown]
  - Cataract nuclear [Unknown]
  - Retinal tear [Unknown]
  - Visual impairment [Unknown]
